FAERS Safety Report 10396108 (Version 1)
Quarter: 2014Q1

REPORT INFORMATION
  Report Type: Spontaneous
  Country: US (occurrence: None)
  Receive Date: 20130724
  Receipt Date: 20130724
  Transmission Date: 20141002
  Serious: Yes (Other)
  Sender: FDA-Public Use
  Company Number: PHHY2011US34555

PATIENT
  Age: 72 Year
  Sex: Male
  Weight: 108.86 kg

DRUGS (1)
  1. GLEEVEC (IMATINIB) UNKNOWN [Suspect]
     Indication: CHRONIC MYELOID LEUKAEMIA
     Route: 048
     Dates: start: 200910, end: 201104

REACTIONS (3)
  - Chronic myeloid leukaemia [None]
  - Diarrhoea [None]
  - Malignant neoplasm progression [None]
